FAERS Safety Report 14505333 (Version 1)
Quarter: 2018Q1

REPORT INFORMATION
  Report Type: Other
  Country: ES (occurrence: ES)
  Receive Date: 20180208
  Receipt Date: 20180208
  Transmission Date: 20180509
  Serious: Yes (Hospitalization, Other)
  Sender: FDA-Public Use
  Company Number: ES-ASPEN-GLO2017ES002476

PATIENT
  Age: 5 Year
  Sex: Male

DRUGS (9)
  1. MESNA. [Concomitant]
     Active Substance: MESNA
     Indication: PRECURSOR T-LYMPHOBLASTIC LYMPHOMA/LEUKAEMIA
     Route: 042
     Dates: start: 20170131, end: 20170131
  2. HYDROCORTISONE. [Interacting]
     Active Substance: HYDROCORTISONE
     Dosage: UNK
     Dates: start: 20160726
  3. TIOGUANINE [Suspect]
     Active Substance: THIOGUANINE ANHYDROUS
     Indication: PRECURSOR T-LYMPHOBLASTIC LYMPHOMA/LEUKAEMIA
     Route: 048
     Dates: start: 20170131, end: 20170131
  4. CYCLOPHOSPHAMIDE. [Interacting]
     Active Substance: CYCLOPHOSPHAMIDE
     Indication: PRECURSOR T-LYMPHOBLASTIC LYMPHOMA/LEUKAEMIA
     Route: 048
     Dates: start: 20170131, end: 20170131
  5. SEPTRIN [Concomitant]
     Active Substance: SULFAMETHOXAZOLE\TRIMETHOPRIM
     Indication: ANTIBIOTIC PROPHYLAXIS
     Dosage: 13 ML
     Route: 048
     Dates: start: 20160726
  6. ZOVIRAX [Concomitant]
     Active Substance: ACYCLOVIR
     Indication: ANTIBIOTIC PROPHYLAXIS
     Dosage: 7.5 ML
     Route: 048
     Dates: start: 20160726
  7. TIOGUANINE [Interacting]
     Active Substance: THIOGUANINE ANHYDROUS
     Dosage: 40 MG, QD
     Route: 048
     Dates: start: 20170220, end: 20170305
  8. HYDROCORTISONE. [Interacting]
     Active Substance: HYDROCORTISONE
     Indication: PRECURSOR T-LYMPHOBLASTIC LYMPHOMA/LEUKAEMIA
     Dosage: 5 MG
     Route: 048
     Dates: start: 20170131, end: 20170131
  9. OMEPRAZOL [Concomitant]
     Active Substance: OMEPRAZOLE
     Indication: PRODUCT USED FOR UNKNOWN INDICATION
     Dosage: UNK

REACTIONS (5)
  - Respiratory syncytial virus test positive [Recovered/Resolved]
  - Febrile neutropenia [Recovered/Resolved]
  - Cystitis klebsiella [Recovered/Resolved]
  - Drug interaction [Unknown]
  - Septic shock [Recovered/Resolved]

NARRATIVE: CASE EVENT DATE: 20170131
